FAERS Safety Report 9664537 (Version 1)
Quarter: 2013Q4

REPORT INFORMATION
  Report Type: Spontaneous
  Country: US (occurrence: None)
  Receive Date: 20131030
  Receipt Date: 20131030
  Transmission Date: 20140711
  Serious: Yes (Other)
  Sender: FDA-Public Use
  Company Number: None

PATIENT
  Sex: Female

DRUGS (1)
  1. BUPROPION SR 150 MG WATSON [Suspect]
     Indication: DEPRESSION

REACTIONS (3)
  - Depression [None]
  - Condition aggravated [None]
  - Product substitution issue [None]
